FAERS Safety Report 9783265 (Version 1)
Quarter: 2013Q4

REPORT INFORMATION
  Report Type: Spontaneous
  Country: US (occurrence: US)
  Receive Date: 20131226
  Receipt Date: 20131226
  Transmission Date: 20140711
  Serious: Yes (Other)
  Sender: FDA-Public Use
  Company Number: US-UCBSA-107094

PATIENT
  Sex: 0

DRUGS (2)
  1. VIMPAT [Suspect]
  2. KLONOPIN [Concomitant]

REACTIONS (2)
  - Grand mal convulsion [Unknown]
  - Partial seizures [Unknown]
